FAERS Safety Report 16562355 (Version 1)
Quarter: 2019Q3

REPORT INFORMATION
  Report Type: Spontaneous
  Country: IT (occurrence: IT)
  Receive Date: 20190711
  Receipt Date: 20190711
  Transmission Date: 20191004
  Serious: Yes (Life-Threatening, Hospitalization, Other)
  Sender: FDA-Public Use
  Company Number: PHHY2019IT115890

PATIENT
  Age: 12 Year
  Sex: Female
  Weight: 28 kg

DRUGS (17)
  1. ACICLOVIR [Suspect]
     Active Substance: ACYCLOVIR
     Indication: PRODUCT USED FOR UNKNOWN INDICATION
     Dosage: UNK
     Route: 065
  2. COLCHICINE. [Interacting]
     Active Substance: COLCHICINE
     Dosage: 1 MG, QD
     Route: 065
  3. COLCHICINE. [Interacting]
     Active Substance: COLCHICINE
     Dosage: 0.5 MG, QD
     Route: 065
  4. METHYLPREDNISOLONE. [Concomitant]
     Active Substance: METHYLPREDNISOLONE
     Dosage: 10 MG/KG, QOD
     Route: 065
  5. METHYLPREDNISOLONE. [Concomitant]
     Active Substance: METHYLPREDNISOLONE
     Dosage: 2?5 MG/KG PER DOSE
     Route: 042
  6. CICLOSPORIN [Concomitant]
     Active Substance: CYCLOSPORINE
     Indication: CAPILLARY LEAK SYNDROME
  7. VANCOMYCIN [Suspect]
     Active Substance: VANCOMYCIN
     Indication: PRODUCT USED FOR UNKNOWN INDICATION
     Dosage: UNK
     Route: 065
  8. PREDNISONE. [Concomitant]
     Active Substance: PREDNISONE
     Indication: IMMUNOSUPPRESSANT DRUG THERAPY
     Dosage: UNK
     Route: 065
  9. PREDNISONE. [Concomitant]
     Active Substance: PREDNISONE
     Dosage: PREDNISONE TAPERING ON DAYS 44 OF TRANSPLANT
  10. METHYLPREDNISOLONE. [Concomitant]
     Active Substance: METHYLPREDNISOLONE
     Dosage: DAY 347, 10 MG/KG EVERY OTHER DAY
  11. CICLOSPORIN [Concomitant]
     Active Substance: CYCLOSPORINE
     Indication: IMMUNOSUPPRESSANT DRUG THERAPY
     Route: 065
  12. COLCHICINE. [Interacting]
     Active Substance: COLCHICINE
     Indication: CAPILLARY LEAK SYNDROME
     Dosage: 10 G/KG, QD
     Route: 065
  13. COLCHICINE. [Interacting]
     Active Substance: COLCHICINE
     Dosage: 0.125 MG, QD
     Route: 065
  14. PREDNISONE. [Concomitant]
     Active Substance: PREDNISONE
     Indication: CAPILLARY LEAK SYNDROME
  15. MYCOPHENOLATE MOFETIL. [Suspect]
     Active Substance: MYCOPHENOLATE MOFETIL
     Indication: ACUTE KIDNEY INJURY
     Dosage: 600 MG/M2, UNK
     Route: 065
  16. METHYLPREDNISOLONE. [Concomitant]
     Active Substance: METHYLPREDNISOLONE
     Indication: ACUTE KIDNEY INJURY
     Dosage: 25 MG/KG, PER DOSE
     Route: 042
  17. AMIKACIN SULFATE. [Suspect]
     Active Substance: AMIKACIN SULFATE
     Indication: PRODUCT USED FOR UNKNOWN INDICATION
     Dosage: UNK
     Route: 065

REACTIONS (7)
  - Nephropathy toxic [Recovered/Resolved]
  - Drug interaction [Unknown]
  - Product use in unapproved indication [Unknown]
  - Acute kidney injury [Recovered/Resolved]
  - Leukopenia [Recovered/Resolved]
  - Renal impairment [Recovered/Resolved]
  - Capillary leak syndrome [Recovered/Resolved]
